FAERS Safety Report 21133145 (Version 1)
Quarter: 2022Q3

REPORT INFORMATION
  Report Type: Spontaneous
  Country: US (occurrence: None)
  Receive Date: 20220726
  Receipt Date: 20220726
  Transmission Date: 20221027
  Serious: No
  Sender: FDA-Public Use
  Company Number: None

PATIENT
  Age: 76 Year
  Sex: Female
  Weight: 67.5 kg

DRUGS (4)
  1. PAXLOVID [Suspect]
     Active Substance: NIRMATRELVIR\RITONAVIR
     Indication: COVID-19
     Dates: start: 20220716, end: 20220720
  2. PRESSER VISION [Concomitant]
  3. VITAMIN D [Concomitant]
     Active Substance: VITAMIN D NOS
  4. MAGNESIUM [Concomitant]
     Active Substance: MAGNESIUM

REACTIONS (7)
  - COVID-19 [None]
  - SARS-CoV-2 test positive [None]
  - Pyrexia [None]
  - Sinus congestion [None]
  - Upper-airway cough syndrome [None]
  - Taste disorder [None]
  - Paraesthesia oral [None]

NARRATIVE: CASE EVENT DATE: 20220725
